FAERS Safety Report 7469112-2 (Version None)
Quarter: 2011Q2

REPORT INFORMATION
  Report Type: 
  Country: None (occurrence: None)
  Receive Date: 20110510
  Receipt Date: 20110427
  Transmission Date: 20111010
  Serious: Yes (Other)
  Sender: FDA-Public Use
  Company Number: GB-ELI_LILLY_AND_COMPANY-GB201101005580

PATIENT
  Age: 56 Year
  Sex: Female
  Weight: 149.21 kg

DRUGS (23)
  1. LANSOPRAZOLE [Concomitant]
     Dosage: UNK, UNKNOWN
  2. BUTRANS [Concomitant]
     Dosage: UNK, UNKNOWN
  3. CYMBALTA [Suspect]
     Indication: DIABETIC NEUROPATHY
     Dosage: 30 MG, QD
     Route: 048
     Dates: end: 20101101
  4. ERYTHROMYCIN ETHYL SUCCINATE       /00020904/ [Concomitant]
     Dosage: UNK UNK, UNKNOWN
  5. NATEGLINIDE [Concomitant]
     Dosage: 180 MG, UNKNOWN
  6. HYDROCORTISONE [Concomitant]
     Dosage: UNK, UNKNOWN
  7. PERINDOPRIL ARGININE [Concomitant]
     Dosage: 10 MG, UNKNOWN
  8. CALCICHEW-D3 FORTE [Concomitant]
     Dosage: 2 DF, QD
  9. PIOGLITAZONE HCL [Concomitant]
     Dosage: 15 MG, UNKNOWN
  10. KETOCONAZOLE [Concomitant]
     Dosage: 2 DF, UNKNOWN
  11. FELODIPINE [Concomitant]
     Dosage: 10 MG, UNKNOWN
  12. ACETAMINOPHEN AND CODEINE PHOSPHATE [Concomitant]
     Dosage: UNK, UNKNOWN
  13. TOPIRAMATE [Concomitant]
     Dosage: 25 MG, UNKNOWN
  14. AVEENO [Concomitant]
     Dosage: UNK, PRN
  15. SORBSAN [Concomitant]
     Dosage: UNK, UNKNOWN
  16. DOSULEPIN [Concomitant]
     Dosage: 25 MG, UNKNOWN
  17. MONTELUKAST SODIUM [Concomitant]
     Dosage: 10 DF, UNKNOWN
  18. BUDESONIDE W/FORMOTEROL FUMARATE [Concomitant]
     Dosage: UNK, UNKNOWN
  19. FUROSEMIDE [Concomitant]
     Dosage: UNK, UNKNOWN
  20. METFFORMIN HYDROCHLORIDE [Concomitant]
     Dosage: UNK UNK, UNKNOWN
  21. QUININE SULFATE [Concomitant]
     Dosage: 300 DF, UNKNOWN
  22. ETORICOXIB [Concomitant]
     Dosage: 90 MG, UNKNOWN
  23. AVEENO BATH [Concomitant]
     Dosage: UNK, PRN

REACTIONS (1)
  - ANAPHYLACTIC REACTION [None]
